FAERS Safety Report 26209090 (Version 1)
Quarter: 2025Q4

REPORT INFORMATION
  Report Type: Spontaneous
  Country: US (occurrence: US)
  Receive Date: 20251229
  Receipt Date: 20251229
  Transmission Date: 20260118
  Serious: No
  Sender: ROCHE
  Company Number: US-ROCHE-10000470941

PATIENT
  Sex: Male

DRUGS (1)
  1. HEMLIBRA [Suspect]
     Active Substance: EMICIZUMAB-KXWH
     Indication: Haemophilia
     Dosage: STRENGTH: 60 MG/0.4 ML?DOSE: 240 MG (1.6ML)
     Route: 058
     Dates: start: 20250709

REACTIONS (1)
  - Panic attack [Unknown]
